FAERS Safety Report 12142836 (Version 2)
Quarter: 2016Q2

REPORT INFORMATION
  Report Type: Spontaneous
  Country: US (occurrence: US)
  Receive Date: 20160303
  Receipt Date: 20160414
  Transmission Date: 20160815
  Serious: No
  Sender: FDA-Public Use
  Company Number: ALCN2016US001662

PATIENT
  Age: 78 Year
  Sex: Male

DRUGS (1)
  1. PAZEO [Suspect]
     Active Substance: OLOPATADINE HYDROCHLORIDE
     Indication: EYE ALLERGY
     Dosage: 1 GTT, QD
     Route: 047
     Dates: start: 20160216, end: 20160220

REACTIONS (3)
  - Eye swelling [Recovered/Resolved]
  - Vision blurred [Recovered/Resolved]
  - Abnormal sensation in eye [Unknown]

NARRATIVE: CASE EVENT DATE: 20160216
